FAERS Safety Report 8230160-6 (Version None)
Quarter: 2012Q1

REPORT INFORMATION
  Report Type: 
  Country: None (occurrence: None)
  Receive Date: 20120323
  Receipt Date: 20120320
  Transmission Date: 20120608
  Serious: Yes (Other)
  Sender: FDA-Public Use
  Company Number: US-PFIZER INC-2012072840

PATIENT
  Sex: Female
  Weight: 150 kg

DRUGS (2)
  1. ZANAFLEX [Concomitant]
     Indication: INTERVERTEBRAL DISC PROTRUSION
     Dosage: 4 MG, 3X/DAY AND ONE DOSE OF 8 MG AT NIGHT
  2. LYRICA [Suspect]
     Indication: FIBROMYALGIA
     Dosage: 100 MG, 3X/DAY
     Route: 048

REACTIONS (1)
  - ABDOMINAL DISTENSION [None]
